FAERS Safety Report 6616143-8 (Version None)
Quarter: 2010Q1

REPORT INFORMATION
  Report Type: 
  Country: None (occurrence: None)
  Receive Date: 20100305
  Receipt Date: 20100223
  Transmission Date: 20100710
  Serious: Yes (Hospitalization, Other)
  Sender: FDA-Public Use
  Company Number: PHHO2009US02040

PATIENT
  Sex: Female
  Weight: 53 kg

DRUGS (10)
  1. ZOLEDRONATE T29581+SOLINJ+BM [Suspect]
     Indication: BREAST CANCER
     Dosage: 4MG
     Route: 042
     Dates: start: 20030715
  2. FEMARA [Suspect]
     Indication: BREAST CANCER
     Dosage: 2.5 MG, QD
     Route: 048
     Dates: start: 20030715
  3. CALCIUM [Concomitant]
  4. VITAMIN D [Concomitant]
  5. SPIRONOLACTONE [Concomitant]
  6. POTASSIUM [Concomitant]
  7. ASPIRIN [Concomitant]
  8. DIGOXIN [Concomitant]
  9. ZOCOR [Concomitant]
  10. LISINOPRIL [Concomitant]

REACTIONS (19)
  - ANGINA UNSTABLE [None]
  - AORTIC CALCIFICATION [None]
  - BLOOD CREATININE INCREASED [None]
  - CARDIAC DISORDER [None]
  - CARDIAC PACEMAKER INSERTION [None]
  - CARDIOPLEGIA [None]
  - CARDIOPULMONARY BYPASS [None]
  - CHEST PAIN [None]
  - CONCOMITANT DISEASE PROGRESSION [None]
  - CORONARY ARTERY BYPASS [None]
  - CORONARY ARTERY STENOSIS [None]
  - CORONARY ARTERY THROMBOSIS [None]
  - DYSPNOEA [None]
  - GLOMERULAR FILTRATION RATE DECREASED [None]
  - ISCHAEMIC CARDIOMYOPATHY [None]
  - LEFT VENTRICULAR DYSFUNCTION [None]
  - OSTEOPOROSIS [None]
  - POST PROCEDURAL HAEMATOMA [None]
  - STERNOTOMY [None]
